FAERS Safety Report 6827497-1 (Version None)
Quarter: 2010Q3

REPORT INFORMATION
  Report Type: 
  Country: None (occurrence: None)
  Receive Date: 20100709
  Receipt Date: 20070116
  Transmission Date: 20110219
  Serious: No
  Sender: FDA-Public Use
  Company Number: US-PFIZER INC-2007005220

PATIENT
  Sex: Male
  Weight: 88.45 kg

DRUGS (11)
  1. CHANTIX [Suspect]
     Indication: SMOKING CESSATION THERAPY
     Route: 048
     Dates: start: 20060815
  2. PRAVACHOL [Concomitant]
  3. TRICOR [Concomitant]
  4. AMBIEN [Concomitant]
     Indication: SLEEP DISORDER
  5. FISH OIL [Concomitant]
  6. GARLIC [Concomitant]
  7. LUTEIN [Concomitant]
  8. ZINC [Concomitant]
  9. VITAMIN C [Concomitant]
  10. VITAMIN E [Concomitant]
  11. ACETYLSALICYLIC ACID [Concomitant]

REACTIONS (1)
  - ABDOMINAL PAIN UPPER [None]
